FAERS Safety Report 8110476-4 (Version None)
Quarter: 2012Q1

REPORT INFORMATION
  Report Type: 
  Country: None (occurrence: None)
  Receive Date: 20120202
  Receipt Date: 20120124
  Transmission Date: 20120608
  Serious: Yes (Hospitalization, Other)
  Sender: FDA-Public Use
  Company Number: US-ASTRAZENECA-2010SE41314

PATIENT
  Age: 43 Year
  Sex: Male
  Weight: 104.3 kg

DRUGS (12)
  1. SEROQUEL [Suspect]
     Route: 048
  2. SEROQUEL [Suspect]
     Route: 048
  3. SEROQUEL [Suspect]
     Route: 048
  4. LITHIUM CARBONATE [Concomitant]
     Indication: BIPOLAR I DISORDER
     Route: 048
  5. SEROQUEL [Suspect]
     Indication: BIPOLAR DISORDER
     Route: 048
     Dates: start: 20080101
  6. SEROQUEL [Suspect]
     Indication: BIPOLAR I DISORDER
     Route: 048
     Dates: start: 20080101
  7. SEROQUEL [Suspect]
     Route: 048
  8. SEROQUEL [Suspect]
     Route: 048
  9. SEROQUEL [Suspect]
     Route: 048
  10. LAMICTAL [Concomitant]
     Indication: BIPOLAR I DISORDER
     Route: 048
  11. SEROQUEL [Suspect]
     Indication: INSOMNIA
     Route: 048
     Dates: start: 20080101
  12. METHYTREXATE [Concomitant]
     Indication: PSORIASIS
     Dosage: DAILY
     Dates: start: 20100101

REACTIONS (12)
  - MYOCARDIAL INFARCTION [None]
  - WEIGHT FLUCTUATION [None]
  - ACTIVITIES OF DAILY LIVING IMPAIRED [None]
  - SOMNOLENCE [None]
  - PSORIASIS [None]
  - SUDDEN ONSET OF SLEEP [None]
  - DRUG DOSE OMISSION [None]
  - MULTI-ORGAN FAILURE [None]
  - ASTHENIA [None]
  - LOSS OF CONSCIOUSNESS [None]
  - INFLUENZA LIKE ILLNESS [None]
  - ADVERSE EVENT [None]
